FAERS Safety Report 13855651 (Version 1)
Quarter: 2017Q3

REPORT INFORMATION
  Report Type: Spontaneous
  Country: US (occurrence: US)
  Receive Date: 20170810
  Receipt Date: 20170810
  Transmission Date: 20171127
  Serious: No
  Sender: FDA-Public Use
  Company Number: US-VIFOR (INTERNATIONAL) INC.-VIT-2017-06389

PATIENT
  Sex: Female

DRUGS (18)
  1. VELTASSA [Suspect]
     Active Substance: PATIROMER
     Indication: HYPERKALAEMIA
     Route: 048
     Dates: start: 20161201
  2. OMEPRAZOLE. [Concomitant]
     Active Substance: OMEPRAZOLE
  3. FOLIC ACID. [Concomitant]
     Active Substance: FOLIC ACID
  4. MELATONIN [Concomitant]
     Active Substance: MELATONIN
  5. CELEXA [Concomitant]
     Active Substance: CITALOPRAM HYDROBROMIDE
  6. SODIUM BICARBONATE. [Concomitant]
     Active Substance: SODIUM BICARBONATE
  7. SIMVASTATIN. [Concomitant]
     Active Substance: SIMVASTATIN
  8. CITRACAL PETITES/VITAMIN D [Concomitant]
  9. XANAX+FIBERCON [Concomitant]
  10. CALCITRIOL. [Concomitant]
     Active Substance: CALCITRIOL
  11. PLAQUENIL [Concomitant]
     Active Substance: HYDROXYCHLOROQUINE SULFATE
  12. PROLIA [Concomitant]
     Active Substance: DENOSUMAB
  13. URSODEOXYCHOLIC ACID [Concomitant]
     Active Substance: URSODIOL
  14. ACETYLSALICYLIC ACID [Concomitant]
     Active Substance: ASPIRIN
  15. COLACE CLEAR [Concomitant]
     Active Substance: DOCUSATE SODIUM
  16. CARVEDILOL. [Concomitant]
     Active Substance: CARVEDILOL
  17. DICYCLOVERINE HYDROCHLORIDE [Concomitant]
     Active Substance: DICYCLOMINE HYDROCHLORIDE
  18. ARANESP (ALBUMIN FREE) [Concomitant]

REACTIONS (1)
  - Drug dose omission [Unknown]

NARRATIVE: CASE EVENT DATE: 2017
